FAERS Safety Report 7414668-9 (Version None)
Quarter: 2011Q2

REPORT INFORMATION
  Report Type: 
  Country: None (occurrence: None)
  Receive Date: 20110406
  Receipt Date: 20110321
  Transmission Date: 20111010
  Serious: Yes (Other)
  Sender: FDA-Public Use
  Company Number: 2011SP006963

PATIENT
  Age: 9 Year
  Sex: Female

DRUGS (2)
  1. ASMANEX TWISTHALER [Suspect]
     Indication: ASTHMA
     Dosage: 110 MCG, QD, INH
     Route: 055
     Dates: start: 20100201
  2. SINGULAIR [Concomitant]

REACTIONS (6)
  - COUGH [None]
  - PRODUCT QUALITY ISSUE [None]
  - PRODUCT TASTE ABNORMAL [None]
  - TOTAL LUNG CAPACITY DECREASED [None]
  - WHEEZING [None]
  - FATIGUE [None]
